FAERS Safety Report 4475802-6 (Version None)
Quarter: 2004Q4

REPORT INFORMATION
  Report Type: 
  Country: None (occurrence: None)
  Receive Date: 20041015
  Receipt Date: 20041005
  Transmission Date: 20050328
  Serious: Yes (Life-Threatening)
  Sender: FDA-Public Use
  Company Number: AU-GLAXOSMITHKLINE-B0347674A

PATIENT
  Sex: Female

DRUGS (3)
  1. ZYBAN [Suspect]
     Route: 048
     Dates: start: 20040823, end: 20040920
  2. EDRONAX [Concomitant]
     Indication: DEPRESSION
  3. PAROXETINE HCL [Concomitant]
     Indication: DEPRESSION

REACTIONS (6)
  - ANOREXIA [None]
  - DIZZINESS [None]
  - FEELING ABNORMAL [None]
  - MANIA [None]
  - NAUSEA [None]
  - SUICIDAL IDEATION [None]
